FAERS Safety Report 20486628 (Version 2)
Quarter: 2022Q1

REPORT INFORMATION
  Report Type: Spontaneous
  Country: RU (occurrence: None)
  Receive Date: 20220217
  Receipt Date: 20220303
  Transmission Date: 20220423
  Serious: Yes (Other)
  Sender: FDA-Public Use
  Company Number: RU-Eisai Medical Research-EC-2022-108614

PATIENT
  Age: 16 Year
  Sex: Male

DRUGS (7)
  1. FYCOMPA [Interacting]
     Active Substance: PERAMPANEL
     Indication: Partial seizures
     Dosage: DOSE AND FREQUENCY UNKNOWN
     Route: 048
     Dates: start: 202111
  2. FYCOMPA [Interacting]
     Active Substance: PERAMPANEL
     Dosage: DOSE AND FREQUENCY UNKNOWN (UP-TITRATION)
     Route: 048
  3. FYCOMPA [Interacting]
     Active Substance: PERAMPANEL
     Route: 048
  4. FYCOMPA [Interacting]
     Active Substance: PERAMPANEL
     Route: 048
     Dates: end: 20220203
  5. FYCOMPA [Interacting]
     Active Substance: PERAMPANEL
     Route: 048
     Dates: start: 20220204
  6. TESTOSTERONE [Interacting]
     Active Substance: TESTOSTERONE
     Indication: Product used for unknown indication
     Dosage: DOSE AND FREQUENCY UNKNOWN
     Route: 065
  7. KEPPRA [Concomitant]
     Active Substance: LEVETIRACETAM
     Indication: Partial seizures
     Dosage: 1750 MG, FREQUENCY UNKNOWN
     Route: 048
     Dates: start: 20210201

REACTIONS (4)
  - Aggression [Not Recovered/Not Resolved]
  - Soliloquy [Not Recovered/Not Resolved]
  - Pallor [Not Recovered/Not Resolved]
  - Drug interaction [Not Recovered/Not Resolved]

NARRATIVE: CASE EVENT DATE: 20220204
